FAERS Safety Report 9652793 (Version 1)
Quarter: 2013Q4

REPORT INFORMATION
  Report Type: Spontaneous
  Country: JP (occurrence: JP)
  Receive Date: 20131029
  Receipt Date: 20131029
  Transmission Date: 20140711
  Serious: Yes (Hospitalization)
  Sender: FDA-Public Use
  Company Number: PHHY2013JP118936

PATIENT
  Age: 68 Year
  Sex: Female

DRUGS (1)
  1. CANDESARTAN CILEXETIL [Suspect]

REACTIONS (4)
  - Livedo reticularis [Unknown]
  - Angioedema [Unknown]
  - Dysarthria [Unknown]
  - Swollen tongue [Unknown]
